FAERS Safety Report 6433842-1 (Version None)
Quarter: 2009Q4

REPORT INFORMATION
  Report Type: 
  Country: None (occurrence: None)
  Receive Date: 20091110
  Receipt Date: 20091030
  Transmission Date: 20100525
  Serious: Yes (Death, Hospitalization)
  Sender: FDA-Public Use
  Company Number: DE-AMGEN-US373034

PATIENT
  Sex: Male
  Weight: 56 kg

DRUGS (13)
  1. ENBREL [Suspect]
     Indication: RHEUMATOID ARTHRITIS
     Route: 058
     Dates: start: 20091002, end: 20091009
  2. LANTAREL [Suspect]
     Indication: RHEUMATOID ARTHRITIS
     Route: 048
     Dates: start: 20090701
  3. PREDNISOLONE [Suspect]
     Indication: RHEUMATOID ARTHRITIS
     Route: 048
     Dates: start: 19960101
  4. TRAMAGIT [Concomitant]
     Route: 048
     Dates: start: 20040901
  5. CAPTOPRIL [Concomitant]
     Route: 048
     Dates: start: 20050701
  6. HYDROCHLOROTHIAZIDE [Concomitant]
     Route: 048
     Dates: start: 20050701
  7. COLECALCIFEROL [Concomitant]
  8. NITRENDIPINE [Concomitant]
     Route: 048
     Dates: start: 20051101
  9. FOSAVANCE [Concomitant]
     Route: 048
     Dates: start: 20070701
  10. PANTOPRAZOLE SODIUM [Concomitant]
     Route: 048
     Dates: start: 20080701
  11. ALLOPURINOL [Concomitant]
     Route: 048
     Dates: start: 20081101
  12. CALCIUM [Concomitant]
  13. BISOPROLOL [Concomitant]
     Route: 048
     Dates: start: 20050701

REACTIONS (7)
  - DYSPNOEA [None]
  - GENERAL PHYSICAL HEALTH DETERIORATION [None]
  - NAUSEA [None]
  - PULMONARY EMBOLISM [None]
  - PYREXIA [None]
  - SEPSIS [None]
  - VOMITING [None]
